FAERS Safety Report 4322399-7 (Version None)
Quarter: 2004Q1

REPORT INFORMATION
  Report Type: 
  Country: None (occurrence: None)
  Receive Date: 20040324
  Receipt Date: 20040310
  Transmission Date: 20041129
  Serious: Yes (Death, Life-Threatening)
  Sender: FDA-Public Use
  Company Number: PHBS2004JP03229

PATIENT
  Age: 67 Year
  Sex: Male

DRUGS (4)
  1. FASTIC #AJ [Suspect]
     Indication: DIABETES MELLITUS
     Dosage: 270 MG/DAY
     Route: 048
     Dates: start: 20031117, end: 20031210
  2. ENDOXAN [Suspect]
     Indication: WEGENER'S GRANULOMATOSIS
     Dosage: 50 MG
     Route: 048
     Dates: start: 20031202, end: 20031205
  3. ALENDRONATE SODIUM [Suspect]
     Dosage: 5 MG/DAY
     Route: 048
     Dates: start: 20031031, end: 20031210
  4. TAKEPRON [Suspect]
     Indication: GASTRIC ULCER
     Dosage: 30 MG/DAY
     Route: 048
     Dates: start: 20031031, end: 20031222

REACTIONS (8)
  - ERYTHEMA [None]
  - INFECTION [None]
  - NIKOLSKY'S SIGN [None]
  - PNEUMONIA [None]
  - PYREXIA [None]
  - SKIN ULCER [None]
  - TOXIC EPIDERMAL NECROLYSIS [None]
  - WEGENER'S GRANULOMATOSIS [None]
